FAERS Safety Report 9683984 (Version 1)
Quarter: 2013Q4

REPORT INFORMATION
  Report Type: Spontaneous
  Country: CH (occurrence: CH)
  Receive Date: 20131112
  Receipt Date: 20131112
  Transmission Date: 20140711
  Serious: Yes (Hospitalization)
  Sender: FDA-Public Use
  Company Number: CH-PFIZER INC-2013317149

PATIENT
  Age: 69 Year
  Sex: Female

DRUGS (12)
  1. LYRICA [Suspect]
     Indication: PAIN
     Dosage: 25 MG, 4X/DAY
     Route: 048
     Dates: end: 201310
  2. PANTOZOL [Suspect]
     Indication: PROPHYLAXIS
     Dosage: 40 MG, 1X/DAY
     Route: 048
  3. ROCEPHIN [Suspect]
     Indication: BACTERIAL INFECTION
     Dosage: 2 G, 1X/DAY
     Route: 042
     Dates: start: 20131015, end: 20131018
  4. AMIKIN [Suspect]
     Indication: BACTERIAL INFECTION
     Dosage: 1 G, 1X/DAY
     Route: 042
     Dates: start: 20131017, end: 20131018
  5. AUGMENTIN [Suspect]
     Indication: BACTERIAL INFECTION
     Dosage: 1.2 G, 3X/DAY EVERY 8 HOURS
     Route: 042
     Dates: start: 20131019, end: 20131022
  6. DAFALGAN [Suspect]
     Indication: PAIN
     Dosage: 1 G, 2X/DAY
     Route: 048
  7. MADOPAR [Suspect]
     Indication: EXTRAPYRAMIDAL DISORDER
     Dosage: 6.25 G, PER 6 HOURS
     Route: 048
     Dates: end: 201310
  8. MADOPAR [Suspect]
     Indication: MOVEMENT DISORDER
  9. LEXOTANIL [Concomitant]
  10. OXYCONTIN [Concomitant]
  11. CYMBALTA [Concomitant]
  12. TRANSIPEG [Concomitant]

REACTIONS (3)
  - Thrombocytopenia [Recovered/Resolved]
  - Urosepsis [Unknown]
  - Renal failure acute [Unknown]
